FAERS Safety Report 19041918 (Version 1)
Quarter: 2021Q1

REPORT INFORMATION
  Report Type: Report from Study
  Country: BR (occurrence: BR)
  Receive Date: 20210322
  Receipt Date: 20210322
  Transmission Date: 20210420
  Serious: Yes (Other)
  Sender: FDA-Public Use
  Company Number: BR-TAKEDA-SPV1-2008-02393

PATIENT
  Age: 8 Year
  Sex: Male
  Weight: 34.6 kg

DRUGS (5)
  1. IDURSULFASE [Suspect]
     Active Substance: IDURSULFASE
     Indication: MUCOPOLYSACCHARIDOSIS II
     Dosage: .5 MG/KG, UNK
     Route: 041
     Dates: start: 20030428
  2. IDURSULFASE [Suspect]
     Active Substance: IDURSULFASE
     Dosage: UNK, 1/WEEK
     Route: 042
     Dates: start: 20071006, end: 20080805
  3. FENOTEROL [Concomitant]
     Active Substance: FENOTEROL
     Dosage: 4 DF, 1X/WEEK
     Route: 048
  4. SULPRIDE [Concomitant]
     Active Substance: SULPIRIDE
     Dosage: 20 DF, 2X/DAY:BID
     Route: 048
  5. N?ACETYLCYSTEINE [Concomitant]
     Active Substance: ACETYLCYSTEINE
     Dosage: 4 DF, 3X/DAY:TID
     Route: 048

REACTIONS (6)
  - Wheezing [Recovered/Resolved]
  - Stridor [Recovered/Resolved]
  - Infusion related reaction [Recovered/Resolved]
  - Flushing [Recovered/Resolved]
  - Respiratory distress [Recovered/Resolved]
  - Tachypnoea [Recovered/Resolved]

NARRATIVE: CASE EVENT DATE: 20071030
